FAERS Safety Report 6770810-4 (Version None)
Quarter: 2010Q2

REPORT INFORMATION
  Report Type: 
  Country: None (occurrence: None)
  Receive Date: 20100614
  Receipt Date: 20100614
  Transmission Date: 20101027
  Serious: No
  Sender: FDA-Public Use
  Company Number: None

PATIENT
  Age: 89 Year
  Sex: Female

DRUGS (2)
  1. TRAVATAN [Suspect]
     Indication: OPEN ANGLE GLAUCOMA
  2. LUMIGAN [Suspect]
     Indication: OPEN ANGLE GLAUCOMA

REACTIONS (1)
  - DRUG HYPERSENSITIVITY [None]
